FAERS Safety Report 25505928 (Version 2)
Quarter: 2025Q3

REPORT INFORMATION
  Report Type: Spontaneous
  Country: EU (occurrence: EU)
  Receive Date: 20250702
  Receipt Date: 20250704
  Transmission Date: 20251021
  Serious: Yes (Other)
  Sender: SANDOZ
  Company Number: EU-SANDOZ-SDZ2025IT046282

PATIENT
  Age: 8 Year
  Sex: Female

DRUGS (2)
  1. MOMETASONE [Suspect]
     Active Substance: MOMETASONE
     Indication: Nasal obstruction
     Route: 065
  2. BETAMETHASONE [Concomitant]
     Active Substance: BETAMETHASONE
     Indication: Cushingoid
     Route: 065

REACTIONS (2)
  - Cushing^s syndrome [Recovered/Resolved]
  - Secondary adrenocortical insufficiency [Recovered/Resolved]
